FAERS Safety Report 4426936-3 (Version None)
Quarter: 2004Q3

REPORT INFORMATION
  Report Type: 
  Country: None (occurrence: None)
  Receive Date: 20040811
  Receipt Date: 20040802
  Transmission Date: 20050211
  Serious: Yes (Death, Hospitalization)
  Sender: FDA-Public Use
  Company Number: HQWYE079208OCT03

PATIENT
  Age: 50 Year
  Sex: Female
  Weight: 58.5 kg

DRUGS (25)
  1. MYLOTARG [Suspect]
     Indication: ACUTE MYELOID LEUKAEMIA
     Dosage: 15 MG 1X PER 1 DAY, INTRAVENOUS
     Route: 042
     Dates: start: 20030930, end: 20030930
  2. BACTRIM DS [Concomitant]
  3. ADVAIR DISKUS [Concomitant]
  4. ALPHAGAN [Concomitant]
  5. ATROVENT [Concomitant]
  6. PROVENTIL (SALBUTAMOL SULFATE) [Concomitant]
  7. PROTONIX [Concomitant]
  8. AMBIEN [Concomitant]
  9. MULTIVITAMINS (ASCORBIC ACID/ERGOCALCIFEROL/FOLIC ACID/NICOTINAMIDE/PA [Concomitant]
  10. FOLATE SODIUM (FOLATE SODIUM) [Concomitant]
  11. SLO-MAG (MAGNESIUM CHLORIDE ANHYDROUS) [Concomitant]
  12. PENICILLIN-VK [Concomitant]
  13. ATIVAN [Concomitant]
  14. ALLOPURINOL [Concomitant]
  15. MORPHINE SULFATE [Concomitant]
  16. MEDROL [Concomitant]
  17. MEDROL [Concomitant]
  18. MAGNESIUM SULFATE [Concomitant]
  19. BENADRYL [Concomitant]
  20. TYLENOL [Concomitant]
  21. VECURONIUM [Concomitant]
  22. HYDROCORTISONE (HYROCORTISONE) [Concomitant]
  23. VERSED [Concomitant]
  24. SODIUM BICARBONATE IN PLASTIC CONTAINER [Concomitant]
  25. ACYCLOVIR [Concomitant]

REACTIONS (20)
  - ABDOMINAL PAIN [None]
  - ALANINE AMINOTRANSFERASE INCREASED [None]
  - ASCITES [None]
  - ASPARTATE AMINOTRANSFERASE INCREASED [None]
  - BLOOD CREATININE INCREASED [None]
  - BLOOD LACTATE DEHYDROGENASE INCREASED [None]
  - BLOOD UREA INCREASED [None]
  - DISEASE PROGRESSION [None]
  - DISSEMINATED INTRAVASCULAR COAGULATION [None]
  - FLUID RETENTION [None]
  - HAEMOGLOBIN DECREASED [None]
  - HYPERBILIRUBINAEMIA [None]
  - HYPOALBUMINAEMIA [None]
  - HYPOTENSION [None]
  - MULTI-ORGAN FAILURE [None]
  - OEDEMA [None]
  - PNEUMONITIS [None]
  - RESPIRATORY FAILURE [None]
  - SPLENIC INFARCTION [None]
  - SPLENOMEGALY [None]
